FAERS Safety Report 4996178-1 (Version None)
Quarter: 2006Q2

REPORT INFORMATION
  Report Type: 
  Country: None (occurrence: None)
  Receive Date: 20060504
  Receipt Date: 20060421
  Transmission Date: 20061013
  Serious: Yes (Other)
  Sender: FDA-Public Use
  Company Number: 2006055360

PATIENT

DRUGS (1)
  1. SUTENT [Suspect]
     Indication: RENAL CELL CARCINOMA STAGE UNSPECIFIED
     Dosage: 50 MG (50 MG, DAILY- INTERVAL:  EVERYDAY), ORAL
     Route: 048
     Dates: start: 20060321, end: 20060401

REACTIONS (3)
  - BLOOD PRESSURE INCREASED [None]
  - OEDEMA PERIPHERAL [None]
  - PROTEINURIA [None]
